FAERS Safety Report 21031633 (Version 1)
Quarter: 2022Q3

REPORT INFORMATION
  Report Type: Spontaneous
  Country: US (occurrence: None)
  Receive Date: 20220701
  Receipt Date: 20220701
  Transmission Date: 20221027
  Serious: No
  Sender: FDA-Public Use
  Company Number: US-ROCHE-2992247

PATIENT
  Sex: Female

DRUGS (1)
  1. ACTEMRA [Suspect]
     Active Substance: TOCILIZUMAB
     Indication: Rheumatoid arthritis
     Dosage: YES
     Route: 065

REACTIONS (5)
  - Cough [Unknown]
  - Ill-defined disorder [Unknown]
  - Tension headache [Unknown]
  - Injection site bruising [Unknown]
  - Hypersensitivity [Unknown]
